FAERS Safety Report 21437087 (Version 8)
Quarter: 2023Q2

REPORT INFORMATION
  Report Type: Report from Study
  Country: CN (occurrence: CN)
  Receive Date: 20221010
  Receipt Date: 20230526
  Transmission Date: 20230722
  Serious: Yes (Hospitalization)
  Sender: FDA-Public Use
  Company Number: CN-KARYOPHARM-2022KPT001202

PATIENT
  Age: 57 Year
  Sex: Male
  Weight: 50 kg

DRUGS (9)
  1. SELINEXOR [Suspect]
     Active Substance: SELINEXOR
     Indication: Diffuse large B-cell lymphoma
     Dosage: 40 MG, WEEKLY
     Route: 048
     Dates: start: 20220517, end: 20220921
  2. SELINEXOR [Suspect]
     Active Substance: SELINEXOR
     Dosage: 40 MG, WEEKLY
     Route: 048
     Dates: start: 20221102, end: 20221217
  3. SELINEXOR [Suspect]
     Active Substance: SELINEXOR
     Dosage: 40 MG, WEEKLY
     Route: 048
     Dates: start: 20220222, end: 20230309
  4. LENALIDOMIDE [Suspect]
     Active Substance: LENALIDOMIDE
     Indication: Diffuse large B-cell lymphoma
     Dosage: 25 MG, ONCE DAILY ON DAYS 1-10
     Route: 048
     Dates: start: 20220517, end: 20220916
  5. LENALIDOMIDE [Suspect]
     Active Substance: LENALIDOMIDE
     Dosage: 25 MG, ONCE DAILY ON DAYS 1-10
     Route: 048
     Dates: start: 20221102, end: 20221217
  6. LENALIDOMIDE [Suspect]
     Active Substance: LENALIDOMIDE
     Dosage: 15 MG, ONCE DAILY ON DAYS 1-10
     Route: 048
     Dates: start: 20220222, end: 20230304
  7. RITUXIMAB [Suspect]
     Active Substance: RITUXIMAB
     Indication: Diffuse large B-cell lymphoma
     Dosage: 589 MG, SINGLE
     Route: 041
     Dates: start: 20220517, end: 20220517
  8. RITUXIMAB [Suspect]
     Active Substance: RITUXIMAB
     Dosage: 585 MG, ONCE EVERY 4 WEEKS
     Route: 041
     Dates: start: 20220616, end: 20220907
  9. RITUXIMAB [Suspect]
     Active Substance: RITUXIMAB
     Dosage: 585 MG, ONCE EVERY 4 WEEKS
     Route: 041
     Dates: start: 20221102, end: 20221102

REACTIONS (4)
  - White blood cell count decreased [Recovered/Resolved]
  - Pneumonia [Recovered/Resolved]
  - Platelet count decreased [Recovered/Resolved]
  - Febrile neutropenia [Recovered/Resolved]

NARRATIVE: CASE EVENT DATE: 20220930
